FAERS Safety Report 5958020-1 (Version None)
Quarter: 2008Q4

REPORT INFORMATION
  Report Type: 
  Country: None (occurrence: None)
  Receive Date: 20081119
  Receipt Date: 20081110
  Transmission Date: 20090506
  Serious: Yes (Other)
  Sender: FDA-Public Use
  Company Number: PHHY2008DE24942

PATIENT
  Sex: Male

DRUGS (11)
  1. MYFORTIC [Suspect]
     Indication: VASCULITIS
     Dosage: 720 MG/DAY
     Route: 048
     Dates: start: 20080916
  2. MYFORTIC [Suspect]
     Indication: POLYARTERITIS NODOSA
     Dosage: 720 MG, BID
     Route: 048
  3. DECORTIN [Suspect]
     Dosage: 25 MG/DAY
     Route: 048
  4. THYROXIN [Concomitant]
  5. NEBILET [Concomitant]
  6. INDAPAMIDE [Concomitant]
  7. ISOVA [Concomitant]
  8. OMEPRAZOLE [Concomitant]
  9. VIGANTOLETTEN [Concomitant]
  10. CALCIUM [Concomitant]
  11. RAMIPRIL [Concomitant]

REACTIONS (3)
  - CATARACT [None]
  - DIARRHOEA [None]
  - NAIL DISCOLOURATION [None]
